FAERS Safety Report 6204171-6 (Version None)
Quarter: 2009Q2

REPORT INFORMATION
  Report Type: 
  Country: None (occurrence: None)
  Receive Date: 20090527
  Receipt Date: 20090519
  Transmission Date: 20091009
  Serious: Yes (Hospitalization, Other)
  Sender: FDA-Public Use
  Company Number: US-MERCK-0904USA04002

PATIENT
  Age: 15 Year
  Sex: Female
  Weight: 56 kg

DRUGS (4)
  1. SINGULAIR [Suspect]
     Indication: ASTHMA
     Route: 048
     Dates: start: 20051101, end: 20090115
  2. SINGULAIR [Suspect]
     Indication: HYPERSENSITIVITY
     Route: 048
     Dates: start: 20051101, end: 20090115
  3. ADVAIR HFA [Concomitant]
     Route: 065
  4. CELEXA [Suspect]
     Route: 065

REACTIONS (9)
  - AGGRESSION [None]
  - BIPOLAR DISORDER [None]
  - COGNITIVE DISORDER [None]
  - DEPRESSION [None]
  - HALLUCINATIONS, MIXED [None]
  - INTENTIONAL SELF-INJURY [None]
  - MANIA [None]
  - SUICIDAL IDEATION [None]
  - UPPER RESPIRATORY TRACT INFECTION [None]
